FAERS Safety Report 6110438-2 (Version None)
Quarter: 2009Q1

REPORT INFORMATION
  Report Type: 
  Country: None (occurrence: None)
  Receive Date: 20090310
  Receipt Date: 20090302
  Transmission Date: 20090719
  Serious: Yes (Hospitalization, Other)
  Sender: FDA-Public Use
  Company Number: US-AMGEN-US335714

PATIENT
  Sex: Male

DRUGS (8)
  1. NPLATE [Suspect]
     Indication: IDIOPATHIC THROMBOCYTOPENIC PURPURA
     Route: 058
     Dates: start: 20080912
  2. IMMUNOGLOBULINS [Concomitant]
     Route: 042
     Dates: start: 20050101, end: 20080801
  3. SUCRALFATE [Concomitant]
  4. OMEPRAZOLE [Concomitant]
  5. AMOXICILLIN [Concomitant]
  6. BACTRIM [Concomitant]
  7. CREON [Concomitant]
  8. ALBUTEROL [Concomitant]

REACTIONS (4)
  - DRUG INEFFECTIVE [None]
  - PNEUMONIA [None]
  - THROMBOCYTOPENIA [None]
  - WOUND SECRETION [None]
